FAERS Safety Report 9604403 (Version 3)
Quarter: 2013Q4

REPORT INFORMATION
  Report Type: Report from Study
  Country: JP (occurrence: JP)
  Receive Date: 20131008
  Receipt Date: 20131114
  Transmission Date: 20140711
  Serious: No
  Sender: FDA-Public Use
  Company Number: JP-UCBSA-090454

PATIENT
  Age: 40 Year
  Sex: Female

DRUGS (7)
  1. XYZAL [Suspect]
     Indication: PRURITUS
     Route: 048
     Dates: start: 20121217, end: 20130106
  2. PROTOPIC [Concomitant]
     Indication: PRURITUS
     Route: 061
  3. MYSER [Concomitant]
     Indication: PRURITUS
     Route: 061
  4. VOALLA [Concomitant]
     Indication: PRURITUS
     Route: 061
  5. LIDOMEX [Concomitant]
     Indication: PRURITUS
     Route: 061
  6. HIRUDOID [Concomitant]
     Indication: PRURITUS
     Route: 061
  7. PROPETO [Concomitant]
     Indication: PRURITUS
     Route: 061

REACTIONS (1)
  - Exposure during pregnancy [Recovered/Resolved]
